FAERS Safety Report 5228617-5 (Version None)
Quarter: 2007Q1

REPORT INFORMATION
  Report Type: 
  Country: None (occurrence: None)
  Receive Date: 20070205
  Receipt Date: 20070122
  Transmission Date: 20070707
  Serious: Yes (Hospitalization)
  Sender: FDA-Public Use
  Company Number: 2007AP00588

PATIENT
  Age: 45 Year
  Sex: Male

DRUGS (4)
  1. CRESTOR [Suspect]
     Indication: TYPE IIA HYPERLIPIDAEMIA
     Route: 048
     Dates: start: 20061001, end: 20061101
  2. CRESTOR [Suspect]
     Route: 048
     Dates: start: 20061101
  3. LIPITOR [Concomitant]
  4. LIVALO [Concomitant]

REACTIONS (3)
  - MYALGIA [None]
  - OEDEMA [None]
  - PROTEINURIA [None]
